FAERS Safety Report 6407479-4 (Version None)
Quarter: 2009Q4

REPORT INFORMATION
  Report Type: 
  Country: None (occurrence: None)
  Receive Date: 20091020
  Receipt Date: 20091012
  Transmission Date: 20100525
  Serious: Yes (Hospitalization, Other)
  Sender: FDA-Public Use
  Company Number: US-ROCHE-642456

PATIENT
  Sex: Female

DRUGS (8)
  1. MYCOPHENOLATE MOFETIL [Suspect]
     Route: 048
     Dates: start: 20070315
  2. BELATACEPT [Suspect]
     Indication: RENAL TRANSPLANT
     Route: 042
     Dates: start: 20070315
  3. PREDNISONE TAB [Suspect]
     Indication: RENAL TRANSPLANT
     Route: 048
     Dates: start: 20090330
  4. INSULIN [Concomitant]
     Dates: start: 20070318
  5. ASPIRIN [Concomitant]
     Dates: start: 20070621
  6. FERROUS SULFATE TAB [Concomitant]
     Dates: start: 20080603
  7. CLOPIDOGREL [Concomitant]
     Dates: start: 20080610
  8. CARDIZEM [Concomitant]
     Dates: start: 20090216

REACTIONS (5)
  - ANAEMIA [None]
  - BASAL CELL CARCINOMA [None]
  - CLOSTRIDIAL INFECTION [None]
  - COAGULOPATHY [None]
  - SQUAMOUS CELL CARCINOMA OF SKIN [None]
